FAERS Safety Report 6224065-X (Version None)
Quarter: 2009Q2

REPORT INFORMATION
  Report Type: 
  Country: None (occurrence: None)
  Receive Date: 20090612
  Receipt Date: 20090605
  Transmission Date: 20091009
  Serious: Yes (Hospitalization)
  Sender: FDA-Public Use
  Company Number: US-JNJCH-2009015780

PATIENT
  Age: 81 Year
  Sex: Female
  Weight: 86.2 kg

DRUGS (1)
  1. BENADRYL [Suspect]
     Indication: HYPERSENSITIVITY
     Dosage: TEXT:2 TAB. DAIL1 ST WEEK, 1 TAB/ D 2 ND WEEK
     Route: 048

REACTIONS (4)
  - CEREBROVASCULAR ACCIDENT [None]
  - CONDITION AGGRAVATED [None]
  - FATIGUE [None]
  - LOSS OF CONSCIOUSNESS [None]
